FAERS Safety Report 8599045-X (Version None)
Quarter: 2012Q3

REPORT INFORMATION
  Report Type: 
  Country: None (occurrence: None)
  Receive Date: 20120803
  Receipt Date: 20120720
  Transmission Date: 20120928
  Serious: Yes (Hospitalization)
  Sender: FDA-Public Use
  Company Number: UTC-021286

PATIENT
  Age: 75 Year
  Sex: Female
  Weight: 56.1 kg

DRUGS (3)
  1. REVATIO [Concomitant]
  2. REMODULIN [Suspect]
     Indication: PULMONARY HYPERTENSION
     Dosage: 33.12 UG.JG (0.023 UG.KG, 1 IN 1 MIN), IV DRIP
     Route: 041
     Dates: start: 20120626
  3. REMODULIN [Suspect]
     Indication: COR PULMONALE CHRONIC
     Dosage: 33.12 UG.JG (0.023 UG.KG, 1 IN 1 MIN), IV DRIP
     Route: 041
     Dates: start: 20120626

REACTIONS (3)
  - HYPOTENSION [None]
  - LOSS OF CONSCIOUSNESS [None]
  - GAIT DISTURBANCE [None]
